FAERS Safety Report 17836517 (Version 1)
Quarter: 2020Q2

REPORT INFORMATION
  Report Type: Spontaneous
  Country: US (occurrence: US)
  Receive Date: 20200529
  Receipt Date: 20200529
  Transmission Date: 20200714
  Serious: No
  Sender: FDA-Public Use
  Company Number: US-ELI_LILLY_AND_COMPANY-US202005008444

PATIENT
  Sex: Male

DRUGS (4)
  1. STRATTERA [Suspect]
     Active Substance: ATOMOXETINE HYDROCHLORIDE
     Dosage: 60 MG, UNKNOWN
     Route: 048
  2. ATOMOXETINE HYDROCHLORIDE 40MG [Suspect]
     Active Substance: ATOMOXETINE HYDROCHLORIDE
     Indication: DYSPNOEA
     Dosage: 40 MG, UNKNOWN
     Route: 048
     Dates: start: 201909
  3. STRATTERA [Suspect]
     Active Substance: ATOMOXETINE HYDROCHLORIDE
     Indication: DYSPNOEA
     Dosage: 60 MG, UNKNOWN
     Route: 048
  4. ATOMOXETINE HYDROCHLORIDE 40MG [Suspect]
     Active Substance: ATOMOXETINE HYDROCHLORIDE
     Dosage: 40 MG, UNKNOWN
     Route: 048

REACTIONS (9)
  - Headache [Not Recovered/Not Resolved]
  - Nausea [Not Recovered/Not Resolved]
  - Dysuria [Not Recovered/Not Resolved]
  - Abdominal pain upper [Not Recovered/Not Resolved]
  - Prescription drug used without a prescription [Unknown]
  - Off label use [Unknown]
  - Libido decreased [Not Recovered/Not Resolved]
  - Pain [Not Recovered/Not Resolved]
  - Lacrimation increased [Not Recovered/Not Resolved]
